FAERS Safety Report 17655316 (Version 6)
Quarter: 2020Q4

REPORT INFORMATION
  Report Type: Report from Study
  Country: None (occurrence: US)
  Receive Date: 20200410
  Receipt Date: 20201222
  Transmission Date: 20210113
  Serious: Yes (Other)
  Sender: FDA-Public Use
  Company Number: US-BIOVITRUM-2020US1698

PATIENT
  Age: 55 Year
  Sex: Female

DRUGS (9)
  1. KINERET [Suspect]
     Active Substance: ANAKINRA
     Route: 058
     Dates: start: 20200730
  2. CALCIUM WITH VITAMIN D [Concomitant]
     Active Substance: CALCIUM\VITAMIN D
  3. MULTIVITAMIN [Concomitant]
     Active Substance: VITAMINS
  4. CLARITIN [Concomitant]
     Active Substance: LORATADINE
  5. PROTONIX [Concomitant]
     Active Substance: PANTOPRAZOLE SODIUM
  6. KINERET [Suspect]
     Active Substance: ANAKINRA
  7. ZYRTEC [Concomitant]
     Active Substance: CETIRIZINE HYDROCHLORIDE
  8. KINERET [Suspect]
     Active Substance: ANAKINRA
     Indication: PERICARDITIS
     Route: 058
     Dates: start: 20200323
  9. IBUPROFEN. [Concomitant]
     Active Substance: IBUPROFEN

REACTIONS (8)
  - Off label use [Unknown]
  - Urinary tract infection [Recovered/Resolved]
  - Injection site erythema [Unknown]
  - Infection [Unknown]
  - Injection site urticaria [Unknown]
  - COVID-19 [Unknown]
  - Injection site pruritus [Unknown]
  - Injection site pain [Unknown]

NARRATIVE: CASE EVENT DATE: 20200323
